FAERS Safety Report 6704110-5 (Version None)
Quarter: 2010Q2

REPORT INFORMATION
  Report Type: 
  Country: None (occurrence: None)
  Receive Date: 20100430
  Receipt Date: 20100420
  Transmission Date: 20101027
  Serious: Yes (Other)
  Sender: FDA-Public Use
  Company Number: AU-JNJFOC-20090300941

PATIENT
  Sex: Male

DRUGS (1)
  1. INVEGA [Suspect]
     Indication: PSYCHOTIC DISORDER
     Route: 048

REACTIONS (8)
  - AGITATION [None]
  - ANAPHYLACTOID REACTION [None]
  - HEADACHE [None]
  - MYDRIASIS [None]
  - PYREXIA [None]
  - SEDATION [None]
  - SEROTONIN SYNDROME [None]
  - SWOLLEN TONGUE [None]
